FAERS Safety Report 7515729-6 (Version None)
Quarter: 2011Q2

REPORT INFORMATION
  Report Type: 
  Country: None (occurrence: None)
  Receive Date: 20110526
  Receipt Date: 20110526
  Transmission Date: 20111010
  Serious: Yes (Hospitalization)
  Sender: FDA-Public Use
  Company Number: None

PATIENT
  Sex: Female
  Weight: 55.9 kg

DRUGS (13)
  1. RAD001 EVEROLIMUS [Suspect]
     Indication: COLORECTAL CANCER
     Dosage: 10 MG PO QD
     Route: 048
     Dates: start: 20110304, end: 20110512
  2. CYANOCOBALAMIN [Concomitant]
  3. TRAZODONE HCL [Concomitant]
  4. ZOFRAN [Concomitant]
  5. POTASSIUM CHLORIDE [Concomitant]
  6. AV-951 [Suspect]
     Indication: COLORECTAL CANCER
     Dosage: 1 MG PO QD
     Route: 048
     Dates: start: 20110304, end: 20110513
  7. NYSTATIN [Concomitant]
  8. LOMOTIL [Concomitant]
  9. CELEXA [Concomitant]
  10. MAGNESIUM GLUCONATE [Concomitant]
  11. MEGACE [Concomitant]
  12. PANTOPRAZOLE [Concomitant]
  13. TOBRADEX [Concomitant]

REACTIONS (5)
  - THROMBOCYTOPENIA [None]
  - FAILURE TO THRIVE [None]
  - DEHYDRATION [None]
  - HYDRONEPHROSIS [None]
  - FATIGUE [None]
